FAERS Safety Report 9539231 (Version 4)
Quarter: 2014Q2

REPORT INFORMATION
  Report Type: Report from Study
  Country: US (occurrence: US)
  Receive Date: 20130920
  Receipt Date: 20140627
  Transmission Date: 20141212
  Serious: Yes (Hospitalization)
  Sender: FDA-Public Use
  Company Number: US-SANOFI-AVENTIS-2013SA091464

PATIENT
  Age: 53 Year
  Sex: Male
  Weight: 100 kg

DRUGS (6)
  1. AUBAGIO [Suspect]
     Indication: MULTIPLE SCLEROSIS
     Route: 048
     Dates: start: 201303
  2. BACLOFEN [Concomitant]
     Indication: MULTIPLE SCLEROSIS
     Dosage: TAKEN FROM 2 YEARS
  3. VITAMIN D [Concomitant]
     Indication: HYPOVITAMINOSIS
     Dosage: TAKEN FROM 1 YEARR
  4. ASPIRIN [Concomitant]
  5. VIAGRA [Concomitant]
     Indication: ERECTILE DYSFUNCTION
  6. MULTIVITAMINS [Concomitant]

REACTIONS (3)
  - Pulmonary embolism [Not Recovered/Not Resolved]
  - Flank pain [Recovering/Resolving]
  - Drug ineffective [Unknown]
